FAERS Safety Report 13353329 (Version 5)
Quarter: 2017Q3

REPORT INFORMATION
  Report Type: Spontaneous
  Country: EG (occurrence: EG)
  Receive Date: 20170321
  Receipt Date: 20170906
  Transmission Date: 20171127
  Serious: Yes (Other)
  Sender: FDA-Public Use
  Company Number: EG-009507513-1703EGY006634

PATIENT
  Age: 55 Year
  Sex: Female
  Weight: 65 kg

DRUGS (16)
  1. MIDAZOLAM [Concomitant]
     Active Substance: MIDAZOLAM HYDROCHLORIDE
     Dosage: 1 MG, ONCE; AFTER SURGERY, WHEN THE BLOOD PRESSURE BEGAN TO RISE
     Route: 042
  2. ROCURONIUM BROMIDE. [Interacting]
     Active Substance: ROCURONIUM BROMIDE
     Indication: INDUCTION OF ANAESTHESIA
     Dosage: 0.6 MG/KG, ONCE
     Route: 042
  3. AMLODIPINE [Concomitant]
     Active Substance: AMLODIPINE BESYLATE
     Indication: HYPERTENSION
     Dosage: 5 MG ONCE DAILY
     Route: 048
  4. PROPOFOL. [Concomitant]
     Active Substance: PROPOFOL
     Dosage: 30 MG, UNK
     Route: 042
  5. ROCURONIUM BROMIDE. [Interacting]
     Active Substance: ROCURONIUM BROMIDE
     Indication: ENDOTRACHEAL INTUBATION
  6. MIDAZOLAM [Concomitant]
     Active Substance: MIDAZOLAM HYDROCHLORIDE
     Indication: PREMEDICATION
     Dosage: 1 MG, ONCE; ON ADMISSION TO THE OPERATING THEATRE
     Route: 042
  7. SIMVASTATIN. [Suspect]
     Active Substance: SIMVASTATIN
     Indication: HYPERCHOLESTEROLAEMIA
     Dosage: 40 MG ONCE DAILY
     Route: 048
  8. FENTANYL. [Concomitant]
     Active Substance: FENTANYL
     Indication: INDUCTION AND MAINTENANCE OF ANAESTHESIA
     Dosage: 2 MICROGRAM/KG BODY WEIGHT;FOR GENERAL ANESTHESIA
     Route: 042
  9. FENTANYL. [Concomitant]
     Active Substance: FENTANYL
     Dosage: 25 MICROGRAM BOLUSES TO MAINTAIN GENERAL ANESTHESIA
     Route: 042
  10. FENTANYL. [Concomitant]
     Active Substance: FENTANYL
     Dosage: 25 MICROGRAM, UNK
     Route: 042
  11. PROPOFOL. [Concomitant]
     Active Substance: PROPOFOL
     Indication: INDUCTION OF ANAESTHESIA
     Dosage: 2 MG/KG, UNK
     Route: 042
  12. ISOFLURANE. [Concomitant]
     Active Substance: ISOFLURANE
     Indication: MAINTENANCE OF ANAESTHESIA
     Dosage: 1.0-1.5% IN 40% OXYGEN-ENRICHED AIR
     Route: 055
  13. BUPIVACAINE. [Concomitant]
     Active Substance: BUPIVACAINE
     Dosage: 20 ML, UNK
  14. CAPTOPRIL. [Concomitant]
     Active Substance: CAPTOPRIL
     Indication: HYPERTENSION
     Dosage: 25 MG TWICE DAILY
     Route: 048
  15. LIDOCAINE. [Concomitant]
     Active Substance: LIDOCAINE
     Dosage: UNK
  16. ISOFLURANE. [Concomitant]
     Active Substance: ISOFLURANE
     Dosage: 0.5 % WAS RESTARTED

REACTIONS (7)
  - Potentiating drug interaction [Unknown]
  - Drug effect prolonged [Recovered/Resolved]
  - Toxicity to various agents [Unknown]
  - Myalgia [Unknown]
  - Unresponsive to stimuli [Recovered/Resolved]
  - Delayed recovery from anaesthesia [Recovered/Resolved]
  - Myopathy toxic [Unknown]
